FAERS Safety Report 24675988 (Version 1)
Quarter: 2024Q4

REPORT INFORMATION
  Report Type: Spontaneous
  Country: CH (occurrence: CH)
  Receive Date: 20241128
  Receipt Date: 20241128
  Transmission Date: 20250114
  Serious: Yes (Life-Threatening, Hospitalization, Other)
  Sender: PFIZER
  Company Number: None

PATIENT
  Age: 14 Year
  Sex: Male
  Weight: 51 kg

DRUGS (13)
  1. CYTARABINE [Suspect]
     Active Substance: CYTARABINE
     Indication: Precursor T-lymphoblastic lymphoma/leukaemia stage IV
     Dosage: UNK
     Route: 037
     Dates: start: 20240911, end: 20240911
  2. CYTARABINE [Suspect]
     Active Substance: CYTARABINE
     Dosage: 2 MG/M2, SINGLE (IN TOTAL)
     Route: 040
     Dates: start: 20240915, end: 20240915
  3. CYTARABINE [Suspect]
     Active Substance: CYTARABINE
     Dosage: 2 MG/M2, SINGLE (IN TOTAL)
     Route: 040
     Dates: start: 20240916, end: 20240916
  4. VINCRISTINE SULFATE [Suspect]
     Active Substance: VINCRISTINE SULFATE
     Indication: Precursor T-lymphoblastic lymphoma/leukaemia stage IV
     Dosage: 1.27 MG/M2, SINGLE (IN TOTAL)
     Route: 040
     Dates: start: 20240911, end: 20240911
  5. VINCRISTINE SULFATE [Suspect]
     Active Substance: VINCRISTINE SULFATE
     Dosage: 1.27 MG/M2, SINGLE (IN TOTAL)
     Route: 040
     Dates: start: 20240916, end: 20240916
  6. METHOTREXATE SODIUM [Suspect]
     Active Substance: METHOTREXATE SODIUM
     Indication: Precursor T-lymphoblastic lymphoma/leukaemia stage IV
     Dosage: 5 G/M2
     Route: 040
     Dates: start: 20240911, end: 20240911
  7. METHOTREXATE SODIUM [Suspect]
     Active Substance: METHOTREXATE SODIUM
     Dosage: UNK
     Route: 037
     Dates: start: 20240911, end: 20240911
  8. CYCLOPHOSPHAMIDE [Suspect]
     Active Substance: CYCLOPHOSPHAMIDE
     Indication: Precursor T-lymphoblastic lymphoma/leukaemia stage IV
     Dosage: UNK
     Dates: start: 20240911, end: 20240911
  9. CYCLOPHOSPHAMIDE [Suspect]
     Active Substance: CYCLOPHOSPHAMIDE
     Dosage: 200 MG/M2, DAILY
     Route: 040
     Dates: start: 20240912, end: 20240912
  10. CYCLOPHOSPHAMIDE [Suspect]
     Active Substance: CYCLOPHOSPHAMIDE
     Dosage: 200 MG/M2, 2X/DAY (EVERY 12 H)
     Route: 040
     Dates: start: 20240913, end: 20240913
  11. CYCLOPHOSPHAMIDE [Suspect]
     Active Substance: CYCLOPHOSPHAMIDE
     Dosage: 200 MG/M2, 2X/DAY (EVERY 12 H)
     Route: 040
     Dates: start: 20240914, end: 20240914
  12. DEXAMETHASONE [Suspect]
     Active Substance: DEXAMETHASONE
     Indication: Precursor T-lymphoblastic lymphoma/leukaemia stage IV
     Dosage: 6.35 MG/M2, 3X/DAY (EVERY 8 H)
     Route: 048
     Dates: start: 20240911, end: 20240915
  13. PREDNISOLONE ACETATE [Suspect]
     Active Substance: PREDNISOLONE ACETATE
     Indication: Precursor T-lymphoblastic lymphoma/leukaemia stage IV
     Dosage: UNK
     Route: 037
     Dates: start: 20240911, end: 20240911

REACTIONS (20)
  - Mucosal inflammation [Not Recovered/Not Resolved]
  - Enterocolitis haemorrhagic [Not Recovered/Not Resolved]
  - Escherichia sepsis [Not Recovered/Not Resolved]
  - Neutropenia [Not Recovered/Not Resolved]
  - Polyserositis [Not Recovered/Not Resolved]
  - Capillary leak syndrome [Not Recovered/Not Resolved]
  - Pleural effusion [Not Recovered/Not Resolved]
  - Pericardial effusion [Not Recovered/Not Resolved]
  - Ascites [Not Recovered/Not Resolved]
  - Acute kidney injury [Not Recovered/Not Resolved]
  - Pancreatitis [Not Recovered/Not Resolved]
  - Cholestasis [Not Recovered/Not Resolved]
  - Pancytopenia [Not Recovered/Not Resolved]
  - Small intestinal perforation [Not Recovered/Not Resolved]
  - Cytomegalovirus infection reactivation [Not Recovered/Not Resolved]
  - Gastrointestinal mucormycosis [Not Recovered/Not Resolved]
  - Neuropathy peripheral [Not Recovered/Not Resolved]
  - Staphylococcus test positive [Not Recovered/Not Resolved]
  - Herpes simplex reactivation [Not Recovered/Not Resolved]
  - Human herpesvirus 6 infection reactivation [Not Recovered/Not Resolved]

NARRATIVE: CASE EVENT DATE: 20240916
